FAERS Safety Report 9629287 (Version 1)
Quarter: 2013Q4

REPORT INFORMATION
  Report Type: Spontaneous
  Country: BR (occurrence: BR)
  Receive Date: 20131017
  Receipt Date: 20131017
  Transmission Date: 20140711
  Serious: Yes (Other)
  Sender: FDA-Public Use
  Company Number: BR-PFIZER INC-2013291940

PATIENT
  Age: 67 Year
  Sex: Female
  Weight: 86 kg

DRUGS (10)
  1. XALATAN [Suspect]
     Indication: GLAUCOMA
     Dosage: 1 DROP IN EACH EYE, 1X/DAY
     Route: 047
     Dates: start: 20041010
  2. AMIODARONE [Concomitant]
     Indication: ARRHYTHMIA
     Dosage: 1 TABLET, DAILY
  3. ARADOIS [Concomitant]
     Indication: HYPERTENSION
     Dosage: 2 TABLETS, DAILY
  4. CAPILAREMA [Concomitant]
     Indication: MUSCLE SPASMS
     Dosage: 2 TABLETS, DAILY
  5. CAPILAREMA [Concomitant]
     Indication: ANGIOPATHY
  6. CENTRUM [Concomitant]
     Indication: BLOOD CALCIUM
     Dosage: 1 TABLET, DAILY
     Dates: start: 2009
  7. KETOCONAZOLE [Concomitant]
     Indication: OSTEOARTHRITIS
     Dosage: APPLIED 2X/DAY
  8. KETOPROFEN [Concomitant]
     Indication: OSTEOARTHRITIS
     Dosage: 2 TABLET, DAILY
     Dates: start: 2010
  9. RIVOTRIL [Concomitant]
     Indication: ANXIOLYTIC THERAPY
     Dosage: 1 TABLET, DAILY
     Dates: start: 2000
  10. VENLAFAXINE [Concomitant]
     Indication: ANTIDEPRESSANT THERAPY
     Dosage: 2 TABLET, DAILY
     Dates: start: 2012

REACTIONS (3)
  - Cataract [Unknown]
  - Intraocular pressure increased [Unknown]
  - Pharyngitis [Unknown]
